FAERS Safety Report 5012885-9 (Version None)
Quarter: 2006Q2

REPORT INFORMATION
  Report Type: 
  Country: None (occurrence: None)
  Receive Date: 20060524
  Receipt Date: 20060314
  Transmission Date: 20061013
  Serious: Yes (Death)
  Sender: FDA-Public Use
  Company Number: T200600374

PATIENT
  Age: 24 Year
  Sex: 0

DRUGS (3)
  1. OXYCODONE HYDROCHLORIDE TABLETS, USP (OXYCODONE HCL)TABLET [Suspect]
     Dosage: ORAL
     Route: 048
  2. METHYLENEDIOXYMETHAMPHETAMINE (METHYLENEDIOXYMETHAMPHETAMINE) [Suspect]
     Dosage: UNK
     Route: 065
  3. PROMETHAZINE [Suspect]
     Dosage: UNK
     Route: 065

REACTIONS (3)
  - CARDIAC ARREST [None]
  - INTENTIONAL DRUG MISUSE [None]
  - RESPIRATORY ARREST [None]
